FAERS Safety Report 23322721 (Version 1)
Quarter: 2023Q4

REPORT INFORMATION
  Report Type: Report from Study
  Country: CA (occurrence: CA)
  Receive Date: 20231220
  Receipt Date: 20231220
  Transmission Date: 20240109
  Serious: Yes (Other)
  Sender: FDA-Public Use
  Company Number: CA-BAUSCH-BL-2023-010310

PATIENT
  Sex: Female

DRUGS (5)
  1. CONTRAVE [Suspect]
     Active Substance: BUPROPION HYDROCHLORIDE\NALTREXONE HYDROCHLORIDE
     Indication: Weight control
     Dosage: 90/8 MG, 1 TAB Q AM
     Route: 048
     Dates: start: 20230623, end: 20230629
  2. CONTRAVE [Suspect]
     Active Substance: BUPROPION HYDROCHLORIDE\NALTREXONE HYDROCHLORIDE
     Dosage: 90/8 MG, 1 TAB Q AM, 1 TAB Q PM
     Route: 048
     Dates: start: 20230630, end: 202307
  3. CONTRAVE [Suspect]
     Active Substance: BUPROPION HYDROCHLORIDE\NALTREXONE HYDROCHLORIDE
     Dosage: 90/8 MG
     Route: 048
     Dates: start: 202307, end: 202307
  4. CONTRAVE [Suspect]
     Active Substance: BUPROPION HYDROCHLORIDE\NALTREXONE HYDROCHLORIDE
     Dosage: 90/8 MG, PATIENT IS IN THE THIRD MONTH, TAKING 4 TAB/DAY (2 DOSAGE FORMS,1  IN 12 HR)
     Route: 048
     Dates: start: 20230714
  5. TRAMADOL [Interacting]
     Active Substance: TRAMADOL\TRAMADOL HYDROCHLORIDE
     Indication: Pain
     Dosage: UNK
     Route: 065
     Dates: start: 202310, end: 20231104

REACTIONS (11)
  - Dislocation of vertebra [Not Recovered/Not Resolved]
  - Joint dislocation [Not Recovered/Not Resolved]
  - Non-alcoholic fatty liver [Not Recovered/Not Resolved]
  - Throat irritation [Unknown]
  - Dysphagia [Unknown]
  - Food craving [Not Recovered/Not Resolved]
  - Taste disorder [Not Recovered/Not Resolved]
  - Abdominal pain upper [Recovered/Resolved]
  - Nausea [Recovered/Resolved]
  - Contraindicated product administered [Unknown]
  - Labelled drug-drug interaction issue [Unknown]

NARRATIVE: CASE EVENT DATE: 20230101
